FAERS Safety Report 7960362-5 (Version None)
Quarter: 2011Q4

REPORT INFORMATION
  Report Type: 
  Country: None (occurrence: None)
  Receive Date: 20111206
  Receipt Date: 20111130
  Transmission Date: 20120403
  Serious: Yes (Hospitalization, Other)
  Sender: FDA-Public Use
  Company Number: JP-ABBOTT-11P-087-0879735-00

PATIENT
  Age: 29 Year
  Sex: Female

DRUGS (7)
  1. KALETRA [Suspect]
     Route: 048
     Dates: start: 20100810
  2. NORVIR [Suspect]
     Indication: HIV INFECTION
     Route: 048
     Dates: start: 20091101, end: 20091222
  3. REYATAZ [Suspect]
     Indication: HIV INFECTION
     Route: 048
     Dates: start: 20091101, end: 20091222
  4. KALETRA [Suspect]
     Indication: HIV INFECTION
     Route: 048
     Dates: start: 20091223, end: 20100726
  5. EPZICOM [Suspect]
     Indication: HIV INFECTION
     Route: 048
     Dates: start: 20091101, end: 20110208
  6. RETROVIR [Suspect]
     Indication: PRODUCT USED FOR UNKNOWN INDICATION
     Route: 042
     Dates: start: 20100629
  7. EFAVIRENZ [Concomitant]
     Indication: PRODUCT USED FOR UNKNOWN INDICATION
     Dates: start: 20100727, end: 20100809

REACTIONS (4)
  - ABDOMINAL DISTENSION [None]
  - BLOOD TRIGLYCERIDES INCREASED [None]
  - PREMATURE LABOUR [None]
  - ANAEMIA [None]
